FAERS Safety Report 4978685-0 (Version None)
Quarter: 2006Q2

REPORT INFORMATION
  Report Type: 
  Country: None (occurrence: None)
  Receive Date: 20060420
  Receipt Date: 20051123
  Transmission Date: 20061013
  Serious: Yes (Hospitalization, Other)
  Sender: FDA-Public Use
  Company Number: US-MERCK-0511USA04435

PATIENT
  Age: 52 Year
  Sex: Female

DRUGS (1)
  1. VIOXX [Suspect]
     Indication: OSTEOARTHRITIS
     Route: 048
     Dates: start: 20020601, end: 20031101

REACTIONS (33)
  - ACQUIRED OESOPHAGEAL WEB [None]
  - ANXIETY [None]
  - AORTIC VALVE CALCIFICATION [None]
  - AORTIC VALVE INCOMPETENCE [None]
  - ARTERIOVENOUS MALFORMATION [None]
  - ARTHRALGIA [None]
  - ASTHENIA [None]
  - ATRIAL SEPTAL DEFECT [None]
  - BITE [None]
  - CARDIAC DISORDER [None]
  - CEREBRAL THROMBOSIS [None]
  - CEREBROVASCULAR ACCIDENT [None]
  - CHEST DISCOMFORT [None]
  - CHOLELITHIASIS OBSTRUCTIVE [None]
  - CORONARY ARTERY DISEASE [None]
  - DRY EYE [None]
  - DRY MOUTH [None]
  - DYSPNOEA EXERTIONAL [None]
  - FALL [None]
  - GASTROOESOPHAGEAL REFLUX DISEASE [None]
  - HEMIPARESIS [None]
  - HYPERCHOLESTEROLAEMIA [None]
  - PAIN IN EXTREMITY [None]
  - PEPTIC ULCER [None]
  - PULMONARY MALFORMATION [None]
  - PYREXIA [None]
  - SINUS BRADYCARDIA [None]
  - SLEEP APNOEA SYNDROME [None]
  - SWELLING FACE [None]
  - THROMBOCYTOPENIA [None]
  - TINNITUS [None]
  - TRANSIENT ISCHAEMIC ATTACK [None]
  - VISUAL FIELD DEFECT [None]
